FAERS Safety Report 5390641-X (Version None)
Quarter: 2007Q3

REPORT INFORMATION
  Report Type: 
  Country: None (occurrence: None)
  Receive Date: 20070712
  Receipt Date: 20070605
  Transmission Date: 20080115
  Serious: Yes (Hospitalization)
  Sender: FDA-Public Use
  Company Number: 6034692

PATIENT
  Age: 65 Year
  Sex: Male

DRUGS (9)
  1. WARFARIN SODIUM [Suspect]
     Indication: ATRIAL FIBRILLATION
     Dosage: 3 MG (3 MG, 1 IN 1 D)
     Route: 048
     Dates: start: 20050101
  2. ASPIRIN [Suspect]
     Indication: MYOCARDIAL INFARCTION
     Dosage: 75 MG (75 MG, 1 IN 1 D)
     Dates: start: 20050101, end: 20070411
  3. AMIODARONE HCL [Concomitant]
  4. ATORVASTATIN CALCIUM [Concomitant]
  5. ATROVENT [Concomitant]
  6. GLUCOSAMINE (GLUCOSAMINE) [Concomitant]
  7. LISINOPRIL [Concomitant]
  8. SERETIDE (FLUTICASONE PROPIONATE, SALMETEROL XINAFOATE) [Concomitant]
  9. DILTIAZEM HYDROCHLORIDE [Concomitant]

REACTIONS (3)
  - FAECES DISCOLOURED [None]
  - HAEMATEMESIS [None]
  - OESOPHAGEAL ULCER HAEMORRHAGE [None]
